FAERS Safety Report 4459580-2 (Version None)
Quarter: 2004Q3

REPORT INFORMATION
  Report Type: 
  Country: None (occurrence: None)
  Receive Date: 20040910
  Receipt Date: 20040609
  Transmission Date: 20050211
  Serious: Yes (Other)
  Sender: FDA-Public Use
  Company Number: 2004218069US

PATIENT
  Age: 26 Year
  Sex: Female

DRUGS (1)
  1. BEXTRA [Suspect]
     Indication: TENDONITIS
     Dosage: 10 MG, PRN
     Dates: start: 20040526, end: 20040602

REACTIONS (3)
  - ABDOMINAL PAIN UPPER [None]
  - CONVULSION [None]
  - NAUSEA [None]
